FAERS Safety Report 11982789 (Version 3)
Quarter: 2016Q2

REPORT INFORMATION
  Report Type: Report from Study
  Country: US (occurrence: US)
  Receive Date: 20160201
  Receipt Date: 20160407
  Transmission Date: 20160815
  Serious: Yes (Other)
  Sender: FDA-Public Use
  Company Number: US-AMGEN-USASL2016008626

PATIENT
  Age: 69 Year
  Sex: Female

DRUGS (3)
  1. ENBREL [Suspect]
     Active Substance: ETANERCEPT
     Dosage: UNK
     Route: 065
  2. PLAQUENIL [Suspect]
     Active Substance: HYDROXYCHLOROQUINE SULFATE
     Indication: PRODUCT USED FOR UNKNOWN INDICATION
     Dosage: UNK
     Route: 065
  3. ENBREL [Suspect]
     Active Substance: ETANERCEPT
     Indication: RHEUMATOID ARTHRITIS
     Dosage: 50 MG, WEEKLY
     Route: 065
     Dates: start: 199812

REACTIONS (10)
  - Blindness [Unknown]
  - Visual impairment [Unknown]
  - Hand deformity [Unknown]
  - Basal cell carcinoma [Unknown]
  - Grip strength decreased [Unknown]
  - Injection site bruising [Unknown]
  - Device issue [Unknown]
  - Osteoporosis [Unknown]
  - Injection site swelling [Unknown]
  - Musculoskeletal disorder [Unknown]

NARRATIVE: CASE EVENT DATE: 20160126
